FAERS Safety Report 9980836 (Version 1)
Quarter: 2014Q1

REPORT INFORMATION
  Report Type: Spontaneous
  Country: FR (occurrence: FR)
  Receive Date: 20140307
  Receipt Date: 20140307
  Transmission Date: 20141002
  Serious: Yes (Hospitalization, Other)
  Sender: FDA-Public Use
  Company Number: FR-ELI_LILLY_AND_COMPANY-FR201402009246

PATIENT
  Age: 70 Year
  Sex: Male

DRUGS (12)
  1. CYMBALTA [Suspect]
     Indication: PRODUCT USED FOR UNKNOWN INDICATION
     Dosage: 30 MG, QD
     Route: 048
     Dates: start: 2012, end: 20140204
  2. FLECAINE [Suspect]
     Indication: PRODUCT USED FOR UNKNOWN INDICATION
     Dosage: 30 MG, QD
     Route: 048
     Dates: start: 2013
  3. PREDNISONE [Concomitant]
     Dosage: 10 MG, EACH MORNING
  4. OXYCONTIN [Concomitant]
     Dosage: 30 MG, BID
  5. OXINORM                            /00045603/ [Concomitant]
     Dosage: 10 MG, UNTIL 4 DAILY
  6. FLECAINE [Concomitant]
     Dosage: 150 MG, QD
  7. INEXIUM                            /01479302/ [Concomitant]
     Dosage: 20 MG, EACH MORNING
  8. HEPTAMYL [Concomitant]
     Dosage: UNK, TID
  9. TARDYFERON [Concomitant]
     Dosage: UNK, EACH MORNING
  10. PARACETAMOL [Concomitant]
     Dosage: UNK, PRN
  11. ENANTONE                           /00726901/ [Concomitant]
     Dosage: EVERY 6 MONTHS
  12. ZOMETA [Concomitant]
     Dosage: UNK, MONTHLY (1/M)
     Route: 042

REACTIONS (10)
  - Paresis [Unknown]
  - Dyspnoea [Not Recovered/Not Resolved]
  - Myalgia [Not Recovered/Not Resolved]
  - Blood creatine phosphokinase increased [Not Recovered/Not Resolved]
  - Gamma-glutamyltransferase increased [Unknown]
  - Back pain [Unknown]
  - Blood alkaline phosphatase increased [Unknown]
  - Pain in extremity [Unknown]
  - Hyperbilirubinaemia [Unknown]
  - Aspartate aminotransferase increased [Unknown]
